FAERS Safety Report 20479816 (Version 1)
Quarter: 2022Q1

REPORT INFORMATION
  Report Type: Spontaneous
  Country: US (occurrence: US)
  Receive Date: 20220216
  Receipt Date: 20220216
  Transmission Date: 20220423
  Serious: Yes (Death, Other)
  Sender: FDA-Public Use
  Company Number: US-GLENMARK PHARMACEUTICALS-2022GMK070184

PATIENT
  Age: 46 Year
  Sex: Female

DRUGS (10)
  1. GABAPENTIN [Suspect]
     Active Substance: GABAPENTIN
     Indication: Product used for unknown indication
     Dosage: UNK
     Route: 048
  2. GABAPENTIN [Suspect]
     Active Substance: GABAPENTIN
     Dosage: UNK (ASPIRATION (WITH INGESTION))
     Route: 050
  3. TRAMADOL [Suspect]
     Active Substance: TRAMADOL
     Indication: Product used for unknown indication
     Dosage: UNK
     Route: 048
  4. TRAMADOL [Suspect]
     Active Substance: TRAMADOL
     Dosage: UNK (ASPIRATION (WITH INGESTION))
     Route: 050
  5. TRAMADOL [Suspect]
     Active Substance: TRAMADOL
     Dosage: UNK
     Route: 048
  6. TRAMADOL [Suspect]
     Active Substance: TRAMADOL
     Dosage: UNK (ASPIRATION (WITH INGESTION))
     Route: 050
  7. TRAMADOL [Suspect]
     Active Substance: TRAMADOL
     Dosage: UNK
     Route: 048
  8. TRAMADOL [Suspect]
     Active Substance: TRAMADOL
     Dosage: UNK (ASPIRATION (WITH INGESTION))
     Route: 050
  9. HEPARIN [Suspect]
     Active Substance: HEPARIN SODIUM
     Indication: Product used for unknown indication
     Dosage: UNK
     Route: 048
  10. HEPARIN [Suspect]
     Active Substance: HEPARIN SODIUM
     Dosage: UNK (ASPIRATION (WITH INGESTION))
     Route: 050

REACTIONS (1)
  - Completed suicide [Fatal]
